FAERS Safety Report 7611076-2 (Version None)
Quarter: 2011Q3

REPORT INFORMATION
  Report Type: 
  Country: None (occurrence: None)
  Receive Date: 20110715
  Receipt Date: 20110707
  Transmission Date: 20111222
  Serious: Yes (Hospitalization)
  Sender: FDA-Public Use
  Company Number: LB-B.I. PHARMACEUTICALS,INC./RIDGEFIELD-2011-CS-00563AE

PATIENT
  Age: 76 Year
  Sex: Male

DRUGS (2)
  1. PRADAXA [Suspect]
     Indication: THROMBOSIS PROPHYLAXIS
     Route: 048
     Dates: start: 20110621, end: 20110703
  2. TRAMADOL HYDROCHLORIDE [Concomitant]
     Dosage: WHEN NEEDED

REACTIONS (5)
  - PETECHIAE [None]
  - LEUKOPENIA [None]
  - LIVER DISORDER [None]
  - HYPERTHERMIA [None]
  - OCULAR HYPERAEMIA [None]
